FAERS Safety Report 9650884 (Version 2)
Quarter: 2014Q2

REPORT INFORMATION
  Report Type: Spontaneous
  Country: US (occurrence: US)
  Receive Date: 20131029
  Receipt Date: 20140403
  Transmission Date: 20141212
  Serious: Yes (Death)
  Sender: FDA-Public Use
  Company Number: US-PFIZER INC-2013303538

PATIENT
  Age: 63 Year
  Sex: Female

DRUGS (1)
  1. ELLENCE [Suspect]
     Indication: GASTRIC CANCER
     Dosage: 50 MG, UNK
     Dates: start: 20130708

REACTIONS (2)
  - Disease progression [Fatal]
  - Gastric cancer [Fatal]
